FAERS Safety Report 9821029 (Version 2)
Quarter: 2014Q2

REPORT INFORMATION
  Report Type: Spontaneous
  Country: US (occurrence: US)
  Receive Date: 20140116
  Receipt Date: 20140421
  Transmission Date: 20141212
  Serious: Yes (Hospitalization)
  Sender: FDA-Public Use
  Company Number: US-BAYER-2014-006121

PATIENT
  Age: 34 Year
  Sex: Female
  Weight: 70.3 kg

DRUGS (4)
  1. YAZ [Suspect]
  2. GIANVI [Suspect]
     Dosage: UNK
     Dates: start: 20120616, end: 20120714
  3. SAFYRAL [Suspect]
  4. NORCO [Concomitant]
     Dosage: 10/325 MG

REACTIONS (2)
  - Deep vein thrombosis [None]
  - Injury [None]
